FAERS Safety Report 7581452-5 (Version None)
Quarter: 2011Q2

REPORT INFORMATION
  Report Type: 
  Country: None (occurrence: None)
  Receive Date: 20110629
  Receipt Date: 20110616
  Transmission Date: 20111010
  Serious: Yes (Hospitalization)
  Sender: FDA-Public Use
  Company Number: PHHO2011GB10457

PATIENT
  Sex: Female
  Weight: 74 kg

DRUGS (1)
  1. TEGRETOL [Suspect]
     Indication: EPILEPSY
     Dosage: 400MG AM, 600MG PM
     Route: 048
     Dates: start: 20090205

REACTIONS (3)
  - INCORRECT DOSE ADMINISTERED [None]
  - ANTICONVULSANT DRUG LEVEL INCREASED [None]
  - NEUROTOXICITY [None]
